FAERS Safety Report 16078630 (Version 2)
Quarter: 2019Q1

REPORT INFORMATION
  Report Type: Spontaneous
  Country: US (occurrence: US)
  Receive Date: 20190315
  Receipt Date: 20190326
  Transmission Date: 20190418
  Serious: No
  Sender: FDA-Public Use
  Company Number: US-JNJFOC-20190235616

PATIENT
  Age: 66 Year
  Sex: Female

DRUGS (1)
  1. ELMIRON [Suspect]
     Active Substance: PENTOSAN POLYSULFATE SODIUM
     Indication: PRODUCT USED FOR UNKNOWN INDICATION
     Route: 048

REACTIONS (4)
  - Pain [Not Recovered/Not Resolved]
  - Arthralgia [Unknown]
  - Fall [Not Recovered/Not Resolved]
  - Flank pain [Unknown]

NARRATIVE: CASE EVENT DATE: 20190226
